FAERS Safety Report 5007699-X (Version None)
Quarter: 2006Q2

REPORT INFORMATION
  Report Type: 
  Country: None (occurrence: None)
  Receive Date: 20060522
  Receipt Date: 20060419
  Transmission Date: 20061013
  Serious: Yes (Hospitalization)
  Sender: FDA-Public Use
  Company Number: AU-ROCHE-444912

PATIENT
  Age: 19 Year
  Sex: Female
  Weight: 95 kg

DRUGS (8)
  1. PEG-INTERFERON A-2A (RO 25-8310) [Suspect]
     Route: 058
     Dates: start: 20060210, end: 20060224
  2. LARGACTIL [Concomitant]
     Dates: start: 20060221
  3. VALIUM [Concomitant]
     Dates: start: 20060221
  4. IMOVAN [Concomitant]
     Dates: start: 20060221
  5. EPILIM [Concomitant]
     Dates: start: 20050115
  6. UNSPECIFIED DRUG [Concomitant]
     Dosage: DRUG REPORTED AS AROPIPROZONE
     Dates: start: 20050115
  7. VENTOLIN [Concomitant]
     Dates: start: 20050115, end: 20060115
  8. SERETIDE [Concomitant]
     Dates: start: 20050115, end: 20060115

REACTIONS (6)
  - ALANINE AMINOTRANSFERASE INCREASED [None]
  - ASPARTATE AMINOTRANSFERASE INCREASED [None]
  - BLOOD CREATININE INCREASED [None]
  - OVERDOSE [None]
  - PSYCHOTIC DISORDER [None]
  - SCHIZOPHRENIA [None]
